FAERS Safety Report 4341733-5 (Version None)
Quarter: 2004Q2

REPORT INFORMATION
  Report Type: 
  Country: None (occurrence: None)
  Receive Date: 20040420
  Receipt Date: 19990824
  Transmission Date: 20050107
  Serious: Yes (Death, Congenital Anomaly)
  Sender: FDA-Public Use
  Company Number: FR-MERCK-99086033

PATIENT
  Sex: Female

DRUGS (2)
  1. PROMEGESTONE [Concomitant]
     Dates: start: 19980312, end: 19980527
  2. ZOCOR [Suspect]
     Indication: HYPERCHOLESTEROLAEMIA
     Dates: start: 19980312, end: 19980527

REACTIONS (15)
  - ABORTION INDUCED [None]
  - COMPLICATIONS OF MATERNAL EXPOSURE TO THERAPEUTIC DRUGS [None]
  - CONGENITAL FOOT MALFORMATION [None]
  - CONGENITAL GENITOURINARY ABNORMALITY [None]
  - ENLARGED CLITORIS [None]
  - LOWER LIMB DEFORMITY [None]
  - MATERNAL DRUGS AFFECTING FOETUS [None]
  - MULTIPLE CONGENITAL ABNORMALITIES [None]
  - PREGNANCY [None]
  - RENAL CYST [None]
  - RENAL DYSPLASIA [None]
  - SINGLE UMBILICAL ARTERY [None]
  - SPINE MALFORMATION [None]
  - ULTRASOUND ANTENATAL SCREEN ABNORMAL [None]
  - URETEROCELE [None]
